FAERS Safety Report 24775460 (Version 2)
Quarter: 2025Q1

REPORT INFORMATION
  Report Type: Spontaneous
  Country: DE (occurrence: DE)
  Receive Date: 20241226
  Receipt Date: 20250124
  Transmission Date: 20250409
  Serious: Yes (Other)
  Sender: ROCHE
  Company Number: DE-ROCHE-10000162514

PATIENT
  Sex: Female

DRUGS (1)
  1. KADCYLA [Suspect]
     Active Substance: ADO-TRASTUZUMAB EMTANSINE
     Indication: HER2 positive breast cancer
     Route: 065

REACTIONS (4)
  - Lymphoedema [Unknown]
  - Metastases to skin [Unknown]
  - Lymphadenopathy [Unknown]
  - Metastases to lung [Unknown]

NARRATIVE: CASE EVENT DATE: 20240501
